FAERS Safety Report 16456329 (Version 1)
Quarter: 2019Q2

REPORT INFORMATION
  Report Type: Spontaneous
  Country: US (occurrence: US)
  Receive Date: 20190620
  Receipt Date: 20190620
  Transmission Date: 20190711
  Serious: Yes (Other)
  Sender: FDA-Public Use
  Company Number: US-PFIZER INC-2019256346

PATIENT
  Age: 65 Year
  Sex: Female
  Weight: 72.57 kg

DRUGS (2)
  1. NORVASC [Suspect]
     Active Substance: AMLODIPINE BESYLATE
     Dosage: 10.5 MG, 1X/DAY
     Route: 048
     Dates: start: 201905
  2. NORVASC [Suspect]
     Active Substance: AMLODIPINE BESYLATE
     Indication: HYPERTENSION
     Dosage: 5 MG, 1X/DAY
     Route: 048
     Dates: start: 201905

REACTIONS (7)
  - Night sweats [Unknown]
  - Somnolence [Unknown]
  - Eyelid ptosis [Unknown]
  - Peripheral swelling [Unknown]
  - Fatigue [Unknown]
  - Renal impairment [Unknown]
  - Flushing [Unknown]

NARRATIVE: CASE EVENT DATE: 201905
